FAERS Safety Report 24916359 (Version 1)
Quarter: 2025Q1

REPORT INFORMATION
  Report Type: Spontaneous
  Country: FR (occurrence: FR)
  Receive Date: 20250203
  Receipt Date: 20250203
  Transmission Date: 20250408
  Serious: Yes (Disabling)
  Sender: ELI LILLY AND COMPANY
  Company Number: FR-ELI_LILLY_AND_COMPANY-FR202501015778

PATIENT
  Age: 29 Year
  Sex: Male

DRUGS (1)
  1. OLUMIANT [Suspect]
     Active Substance: BARICITINIB
     Indication: Alopecia areata
     Route: 065
     Dates: end: 202410

REACTIONS (2)
  - COVID-19 [Unknown]
  - Neuralgic amyotrophy [Unknown]
